FAERS Safety Report 13119460 (Version 1)
Quarter: 2017Q1

REPORT INFORMATION
  Report Type: Spontaneous
  Country: US (occurrence: US)
  Receive Date: 20170116
  Receipt Date: 20170116
  Transmission Date: 20170428
  Serious: Yes (Other)
  Sender: FDA-Public Use
  Company Number: US-ASTRAZENECA-2017SE03465

PATIENT
  Sex: Male

DRUGS (3)
  1. XANAX [Suspect]
     Active Substance: ALPRAZOLAM
     Route: 048
  2. SEROQUEL [Suspect]
     Active Substance: QUETIAPINE FUMARATE
     Route: 048
  3. PROPRANOLOL [Suspect]
     Active Substance: PROPRANOLOL HYDROCHLORIDE
     Route: 048

REACTIONS (7)
  - Ill-defined disorder [Unknown]
  - Blood pressure decreased [Unknown]
  - Haemorrhoids [Recovered/Resolved]
  - Activities of daily living impaired [Unknown]
  - Chest discomfort [Unknown]
  - Feeling abnormal [Unknown]
  - Coma [Unknown]
